FAERS Safety Report 8379775-5 (Version None)
Quarter: 2012Q2

REPORT INFORMATION
  Report Type: 
  Country: None (occurrence: None)
  Receive Date: 20120523
  Receipt Date: 20120517
  Transmission Date: 20120825
  Serious: Yes (Hospitalization)
  Sender: FDA-Public Use
  Company Number: US-ASTRAZENECA-2011SE41525

PATIENT
  Age: 51 Year
  Sex: Female
  Weight: 95.3 kg

DRUGS (30)
  1. GABAPENTIN [Concomitant]
  2. LORTAB [Concomitant]
     Indication: PAIN
     Dosage: 7.5 MG FOUR TIMES A DAY
     Dates: start: 20081007
  3. KENALOG [Concomitant]
     Indication: TRIGGER FINGER
     Dosage: 0.5 CC
     Dates: start: 20081007
  4. ASPIRIN [Concomitant]
     Dates: start: 20080409
  5. NEXIUM [Suspect]
     Indication: GASTROOESOPHAGEAL REFLUX DISEASE
     Route: 048
     Dates: start: 20050101, end: 20120101
  6. NEXIUM [Suspect]
     Route: 048
     Dates: start: 20080101
  7. ATACAND HCT [Concomitant]
     Dosage: 32/12.5 MG
     Dates: start: 20080409
  8. PROVERA [Concomitant]
     Indication: HAEMOSTASIS
  9. PLAVIX [Concomitant]
  10. CRESTOR [Concomitant]
     Dates: start: 20070614
  11. HYDROCHLOROTHIAZIDE [Concomitant]
     Dates: start: 20070614
  12. LIPITOR [Concomitant]
     Dates: start: 20080609
  13. ATACAND [Concomitant]
     Dosage: 32/12.5
     Dates: start: 20080409
  14. NEXIUM [Suspect]
     Route: 048
     Dates: start: 20080409
  15. PLAVIX [Concomitant]
     Dates: start: 20070614
  16. ATACAND HCT [Concomitant]
     Dosage: 32/12.5MG DAILY
     Route: 048
  17. OMNICEF [Concomitant]
     Dates: start: 20080507
  18. ISOSORBIDE DINITRATE [Concomitant]
  19. BENICAR HCT [Concomitant]
     Dosage: 40/12.5MG
  20. ASPIRIN [Concomitant]
     Dates: start: 20070614
  21. ISOSORBIDE DINITRATE [Concomitant]
     Dates: start: 20080409
  22. GABAPENTIN [Concomitant]
  23. SINGULAIR [Concomitant]
  24. NEXIUM [Suspect]
     Route: 048
     Dates: start: 20060101
  25. CALCIUM [Concomitant]
     Indication: OSTEOPOROSIS
     Dates: start: 20050101
  26. FERROUS SULFATE TAB [Concomitant]
     Indication: ANAEMIA
  27. SPIRONOLACT [Concomitant]
  28. LIDOCAINE [Concomitant]
     Indication: TRIGGER FINGER
     Dosage: 0.5CC
     Dates: start: 20081007
  29. HYDROCHLOROTHIAZIDE [Concomitant]
     Dates: start: 20080409
  30. ULTRAM [Concomitant]
     Dates: start: 20080409

REACTIONS (6)
  - UPPER LIMB FRACTURE [None]
  - ANKLE FRACTURE [None]
  - LIMB CRUSHING INJURY [None]
  - LOWER LIMB FRACTURE [None]
  - SCAR [None]
  - EMOTIONAL DISTRESS [None]
